FAERS Safety Report 16082850 (Version 2)
Quarter: 2019Q3

REPORT INFORMATION
  Report Type: Spontaneous
  Country: US (occurrence: US)
  Receive Date: 20190318
  Receipt Date: 20190814
  Transmission Date: 20191004
  Serious: Yes (Other)
  Sender: FDA-Public Use
  Company Number: US-ASTRAZENECA-2019SE41846

PATIENT
  Sex: Female
  Weight: 66.2 kg

DRUGS (58)
  1. NEXIUM [Suspect]
     Active Substance: ESOMEPRAZOLE MAGNESIUM
     Indication: GASTROOESOPHAGEAL REFLUX DISEASE
     Route: 048
     Dates: start: 2012, end: 2013
  2. PANTOPRAZOLE [Suspect]
     Active Substance: PANTOPRAZOLE
     Indication: GASTROOESOPHAGEAL REFLUX DISEASE
     Route: 065
     Dates: start: 201503, end: 201607
  3. SUMATRIPTAN. [Concomitant]
     Active Substance: SUMATRIPTAN
  4. HYDROCODONE/ACETOMANINOPHEN [Concomitant]
  5. OXYCONTIN [Concomitant]
     Active Substance: OXYCODONE HYDROCHLORIDE
  6. ZOLPIDEM [Concomitant]
     Active Substance: ZOLPIDEM TARTRATE
  7. PROAIR INH [Concomitant]
  8. PREVNAR [Concomitant]
     Active Substance: PNEUMOCOCCAL 7-VALENT CONJUGATE VACCINE (DIPHTHERIA CRM197 PROTEIN)
  9. DOCUSATE SODIUM. [Concomitant]
     Active Substance: DOCUSATE SODIUM
  10. DEXTROAMPHET [Concomitant]
  11. LEVOFLOXACIN. [Concomitant]
     Active Substance: LEVOFLOXACIN
  12. PRAVASTATIN. [Concomitant]
     Active Substance: PRAVASTATIN
  13. METRONIDAZOLE. [Concomitant]
     Active Substance: METRONIDAZOLE
  14. SENNA [Concomitant]
     Active Substance: SENNA LEAF\SENNOSIDES\SENNOSIDES A AND B
  15. LYRICA [Concomitant]
     Active Substance: PREGABALIN
  16. LUNESTA [Concomitant]
     Active Substance: ESZOPICLONE
  17. UNISOM SLEEPTABS [Concomitant]
     Active Substance: DOXYLAMINE SUCCINATE
  18. PANTOPRAZOLE [Suspect]
     Active Substance: PANTOPRAZOLE
     Indication: GASTROOESOPHAGEAL REFLUX DISEASE
     Route: 065
     Dates: start: 201212
  19. ZOSTAVAX [Concomitant]
     Active Substance: VARICELLA-ZOSTER VIRUS STRAIN OKA/MERCK LIVE ANTIGEN
  20. LISINOPRIL. [Concomitant]
     Active Substance: LISINOPRIL
  21. ABILIFY [Concomitant]
     Active Substance: ARIPIPRAZOLE
  22. VENTOLIN [Concomitant]
     Active Substance: ALBUTEROL SULFATE
  23. LEVOTHYROXINE. [Concomitant]
     Active Substance: LEVOTHYROXINE
  24. TAMSULOSIN [Concomitant]
     Active Substance: TAMSULOSIN
  25. AMOXICILLIN. [Concomitant]
     Active Substance: AMOXICILLIN
  26. NEXIUM 24HR [Suspect]
     Active Substance: ESOMEPRAZOLE MAGNESIUM
     Indication: GASTROOESOPHAGEAL REFLUX DISEASE
     Dosage: BEFORE 2012
     Route: 048
  27. FLUOXETINE [Concomitant]
     Active Substance: FLUOXETINE HYDROCHLORIDE
  28. CEFDINIR. [Concomitant]
     Active Substance: CEFDINIR
  29. HYDRALAZINE [Concomitant]
     Active Substance: HYDRALAZINE HYDROCHLORIDE
  30. ROXICODONE [Concomitant]
     Active Substance: OXYCODONE HYDROCHLORIDE
     Route: 065
     Dates: start: 201503, end: 201607
  31. NEXIUM [Suspect]
     Active Substance: ESOMEPRAZOLE MAGNESIUM
     Indication: GASTROOESOPHAGEAL REFLUX DISEASE
     Route: 048
     Dates: start: 201210, end: 201310
  32. OMEPRAZOLE. [Suspect]
     Active Substance: OMEPRAZOLE
     Indication: GASTROOESOPHAGEAL REFLUX DISEASE
     Route: 065
     Dates: start: 201503, end: 201607
  33. CARAFATE [Concomitant]
     Active Substance: SUCRALFATE
  34. PREDNISONE. [Concomitant]
     Active Substance: PREDNISONE
  35. ONDANSETRON [Concomitant]
     Active Substance: ONDANSETRON
  36. BUPROPION. [Concomitant]
     Active Substance: BUPROPION
  37. DICYCLOMINE [Concomitant]
     Active Substance: DICYCLOMINE HYDROCHLORIDE
  38. ROXICODONE [Concomitant]
     Active Substance: OXYCODONE HYDROCHLORIDE
     Route: 065
     Dates: start: 201212
  39. D-AMPHETAMINE SALT [Concomitant]
  40. METOPROLOL. [Concomitant]
     Active Substance: METOPROLOL
  41. CEPHALEXIN. [Concomitant]
     Active Substance: CEPHALEXIN
  42. NITROFURANTOIN. [Concomitant]
     Active Substance: NITROFURANTOIN
  43. DEXTROAMPHET SACC/AMPHE [Concomitant]
  44. ASPIRIN. [Concomitant]
     Active Substance: ASPIRIN
  45. OMEPRAZOLE. [Suspect]
     Active Substance: OMEPRAZOLE
     Indication: GASTROOESOPHAGEAL REFLUX DISEASE
     Route: 065
     Dates: start: 201212
  46. LANSOPRAZOLE. [Suspect]
     Active Substance: LANSOPRAZOLE
     Indication: GASTROOESOPHAGEAL REFLUX DISEASE
     Route: 065
     Dates: start: 201508, end: 201509
  47. HYDROCODONE [Concomitant]
     Active Substance: HYDROCODONE
  48. ALPRAZOLAM. [Concomitant]
     Active Substance: ALPRAZOLAM
  49. CIPROFLOXACIN. [Concomitant]
     Active Substance: CIPROFLOXACIN
  50. GABAPENTIN. [Concomitant]
     Active Substance: GABAPENTIN
  51. PROCHLORPERAZINE. [Concomitant]
     Active Substance: PROCHLORPERAZINE
  52. IMITREX [Concomitant]
     Active Substance: SUMATRIPTAN SUCCINATE
  53. PRILOSEC OTC [Suspect]
     Active Substance: OMEPRAZOLE MAGNESIUM
     Indication: GASTROOESOPHAGEAL REFLUX DISEASE
     Dosage: BEFORE 2012
     Route: 048
  54. OXYCODONE [Concomitant]
     Active Substance: OXYCODONE
  55. DULOXETINE. [Concomitant]
     Active Substance: DULOXETINE
  56. ISOSORBIDE. [Concomitant]
     Active Substance: ISOSORBIDE
  57. CITALOPRAM [Concomitant]
     Active Substance: CITALOPRAM HYDROBROMIDE
  58. HYOSCYAMINE. [Concomitant]
     Active Substance: HYOSCYAMINE

REACTIONS (1)
  - Chronic kidney disease [Not Recovered/Not Resolved]
